FAERS Safety Report 20211090 (Version 1)
Quarter: 2021Q4

REPORT INFORMATION
  Report Type: Spontaneous
  Country: US (occurrence: None)
  Receive Date: 20211221
  Receipt Date: 20211221
  Transmission Date: 20220304
  Serious: No
  Sender: FDA-Public Use
  Company Number: 2021A066478

PATIENT
  Age: 63 Year
  Sex: Male

DRUGS (1)
  1. NEXIUM 24HR [Suspect]
     Active Substance: ESOMEPRAZOLE MAGNESIUM
     Indication: Dyspepsia
     Dosage: UNKNOWN
     Route: 048

REACTIONS (5)
  - Dyspepsia [Unknown]
  - Product use in unapproved indication [Recovered/Resolved]
  - Product storage error [Unknown]
  - Product complaint [Unknown]
  - Incorrect dose administered [Unknown]
